FAERS Safety Report 13296131 (Version 1)
Quarter: 2017Q1

REPORT INFORMATION
  Report Type: Spontaneous
  Country: ES (occurrence: ES)
  Receive Date: 20170304
  Receipt Date: 20170304
  Transmission Date: 20170428
  Serious: Yes (Death, Life-Threatening, Hospitalization, Other)
  Sender: FDA-Public Use
  Company Number: ES-ACCORD-048740

PATIENT
  Age: 28 Year
  Sex: Female

DRUGS (1)
  1. TACROLIMUS. [Suspect]
     Active Substance: TACROLIMUS
     Indication: LIVER TRANSPLANT
     Dosage: SUPPRESSION OF T ADMINISTRATION AND WAS ADDED AGAIN AT VERY LOW DOSES

REACTIONS (6)
  - Venoocclusive liver disease [Not Recovered/Not Resolved]
  - Encephalopathy [Not Recovered/Not Resolved]
  - Multiple organ dysfunction syndrome [Fatal]
  - Toxicity to various agents [Not Recovered/Not Resolved]
  - Internal haemorrhage [Fatal]
  - Acute kidney injury [Not Recovered/Not Resolved]
